FAERS Safety Report 9727176 (Version 1)
Quarter: 2013Q4

REPORT INFORMATION
  Report Type: Spontaneous
  Country: US (occurrence: US)
  Receive Date: 20131203
  Receipt Date: 20131203
  Transmission Date: 20140711
  Serious: No
  Sender: FDA-Public Use
  Company Number: US-BRISTOL-MYERS SQUIBB COMPANY-19431808

PATIENT
  Sex: Male

DRUGS (3)
  1. KOMBIGLYZE XR [Suspect]
     Indication: TYPE 2 DIABETES MELLITUS
     Dosage: KOMBIGLYZE XR 2.5/1000
  2. VITAMIN B12 [Concomitant]
  3. AMBIEN [Concomitant]

REACTIONS (2)
  - Vitamin B12 deficiency [Unknown]
  - Blood glucose fluctuation [Unknown]
